FAERS Safety Report 12869654 (Version 1)
Quarter: 2016Q4

REPORT INFORMATION
  Report Type: Spontaneous
  Country: US (occurrence: US)
  Receive Date: 20161020
  Receipt Date: 20161020
  Transmission Date: 20170207
  Serious: Yes (Hospitalization)
  Sender: FDA-Public Use
  Company Number: None

PATIENT
  Age: 62 Year
  Sex: Female
  Weight: 76.5 kg

DRUGS (9)
  1. BALASAOLIZIDE [Concomitant]
  2. CALCIUM [Concomitant]
     Active Substance: CALCIUM
  3. BABY ASPIRIN [Concomitant]
     Active Substance: ASPIRIN
  4. TEGROTOL [Concomitant]
  5. MAGNESIUM [Concomitant]
     Active Substance: MAGNESIUM
  6. TOPROL XL [Concomitant]
     Active Substance: METOPROLOL SUCCINATE
  7. PANTOPRAZOLE [Concomitant]
     Active Substance: PANTOPRAZOLE SODIUM
  8. BIOTIN [Concomitant]
     Active Substance: BIOTIN
  9. LOTEMAX [Suspect]
     Active Substance: LOTEPREDNOL ETABONATE
     Indication: CONJUNCTIVITIS
     Route: 047
     Dates: start: 20161019, end: 20161019

REACTIONS (8)
  - Nausea [None]
  - Tremor [None]
  - Headache [None]
  - Dizziness [None]
  - Seizure [None]
  - Deja vu [None]
  - Dysphemia [None]
  - Eye disorder [None]

NARRATIVE: CASE EVENT DATE: 20161019
